FAERS Safety Report 4371254-5 (Version None)
Quarter: 2004Q2

REPORT INFORMATION
  Report Type: 
  Country: None (occurrence: None)
  Receive Date: 20040603
  Receipt Date: 20040524
  Transmission Date: 20050107
  Serious: Yes (Other)
  Sender: FDA-Public Use
  Company Number: 2004034659

PATIENT
  Age: 35 Year
  Sex: Female

DRUGS (2)
  1. BENADRYL [Suspect]
     Indication: RHINORRHOEA
     Dosage: 1/2 TEASPOON (3MG) ONCE, ORAL
     Route: 048
     Dates: start: 19960723, end: 19960723
  2. ALPRAZOLAM [Concomitant]

REACTIONS (3)
  - ANXIETY [None]
  - HEART RATE INCREASED [None]
  - IRRITABILITY [None]
